FAERS Safety Report 6581740-5 (Version None)
Quarter: 2010Q1

REPORT INFORMATION
  Report Type: 
  Country: None (occurrence: None)
  Receive Date: 20100215
  Receipt Date: 20100201
  Transmission Date: 20100710
  Serious: Yes (Other)
  Sender: FDA-Public Use
  Company Number: PHEH2008US09014

PATIENT
  Sex: Female
  Weight: 60.771 kg

DRUGS (22)
  1. AREDIA [Suspect]
     Dosage: UNK
  2. PROMETHAZINE [Concomitant]
     Dosage: 25MG PO Q4HRS PRN
     Route: 048
  3. VALTREX [Concomitant]
     Dosage: 1000MG PO TID
     Route: 048
  4. QUININE SULFATE [Concomitant]
     Dosage: 260MG PO QHS
     Route: 048
  5. LORTAB [Concomitant]
     Dosage: 5-500MG Q4HR PRN
     Route: 048
  6. FEMARA [Concomitant]
     Dosage: 2.5MG PO QD
     Route: 048
  7. TRAZODONE HYDROCHLORIDE [Concomitant]
     Dosage: PO
     Route: 048
  8. NEURONTIN [Concomitant]
     Dosage: 300MG PO TID
     Route: 048
  9. EFFEXOR [Concomitant]
     Dosage: 37.5MG PO BID
     Route: 048
  10. AMBIEN [Concomitant]
     Dosage: 5MG PO HS PRN
     Route: 048
  11. IMITREX ^CERENEX^ [Concomitant]
     Dosage: 100MG TABS
     Route: 048
  12. CARAFATE [Concomitant]
     Dosage: UNK
     Route: 048
  13. VITAMIN B6 [Concomitant]
     Dosage: UNK
     Route: 048
  14. AROMASIN [Concomitant]
     Dosage: 25MG PO QD
     Route: 048
  15. OMEPRAZOLE [Concomitant]
     Dosage: 20MG PO QD
     Route: 048
  16. ARIMIDEX [Concomitant]
     Dosage: 1MG PO QD
     Route: 048
  17. VICODIN [Concomitant]
     Dosage: UNK
     Route: 048
  18. LOVENOX [Concomitant]
     Dosage: 50MG SQ
     Route: 058
  19. CLINDAMYCIN [Concomitant]
     Dosage: 600MG
     Dates: start: 20060503, end: 20060504
  20. MORPHINE [Concomitant]
     Dosage: UNK
  21. FENTANYL-100 [Concomitant]
     Dosage: 100MCG
  22. DILAUDID [Concomitant]
     Dosage: 2MG

REACTIONS (20)
  - ANAEMIA [None]
  - ANXIETY [None]
  - CANDIDIASIS [None]
  - CHEST PAIN [None]
  - DECREASED INTEREST [None]
  - DYSPEPSIA [None]
  - FEMUR FRACTURE [None]
  - FIBROCYSTIC BREAST DISEASE [None]
  - GENERAL PHYSICAL HEALTH DETERIORATION [None]
  - HOT FLUSH [None]
  - INSOMNIA [None]
  - MENOPAUSE [None]
  - METASTASES TO BONE [None]
  - METASTATIC PAIN [None]
  - MIGRAINE [None]
  - OEDEMA PERIPHERAL [None]
  - OSTEONECROSIS [None]
  - PAIN [None]
  - SINUSITIS [None]
  - VAGINAL INFECTION [None]
